FAERS Safety Report 8568189-0 (Version None)
Quarter: 2012Q3

REPORT INFORMATION
  Report Type: 
  Country: None (occurrence: None)
  Receive Date: 20120803
  Receipt Date: 20120710
  Transmission Date: 20120928
  Serious: No
  Sender: FDA-Public Use
  Company Number: US-ABBOTT-12P-163-0954655-00

PATIENT
  Sex: Male
  Weight: 93.978 kg

DRUGS (5)
  1. NIASPAN [Suspect]
     Route: 048
     Dates: end: 20120517
  2. SUPPLEMENTS [Concomitant]
     Indication: PRODUCT USED FOR UNKNOWN INDICATION
  3. VITAMIN TAB [Concomitant]
     Indication: PRODUCT USED FOR UNKNOWN INDICATION
  4. NIASPAN [Suspect]
     Indication: BLOOD CHOLESTEROL INCREASED
     Route: 048
     Dates: start: 20120517
  5. NIASPAN [Suspect]
     Dosage: 1-500 MG TABLET DAILY
     Route: 048

REACTIONS (2)
  - INCORRECT DRUG ADMINISTRATION DURATION [None]
  - SKIN DISCOLOURATION [None]
